FAERS Safety Report 19543382 (Version 1)
Quarter: 2021Q3

REPORT INFORMATION
  Report Type: Report from Study
  Country: US (occurrence: US)
  Receive Date: 20210713
  Receipt Date: 20210713
  Transmission Date: 20211014
  Serious: Yes (Hospitalization)
  Sender: FDA-Public Use
  Company Number: US-MYLANLABS-2021M1041413

PATIENT
  Age: 53 Year
  Sex: Female

DRUGS (10)
  1. HEPARIN [Suspect]
     Active Substance: HEPARIN SODIUM
     Indication: ANTICOAGULANT THERAPY
     Dosage: INFUSION
     Route: 065
  2. GABAPENTIN. [Suspect]
     Active Substance: GABAPENTIN
     Indication: PAIN
     Dosage: 900 MILLIGRAM, TID (VIA PERIPHERAL NERVE CATHETERS)
  3. PARACETAMOL [Suspect]
     Active Substance: ACETAMINOPHEN
     Indication: PAIN
     Dosage: UNK, PRN (VIA PERIPHERAL NERVE CATHETERS)
  4. ARGATROBAN. [Concomitant]
     Active Substance: ARGATROBAN
     Indication: ANTICOAGULANT THERAPY
     Dosage: UNK
     Route: 065
  5. TIZANIDINE. [Suspect]
     Active Substance: TIZANIDINE
     Indication: PAIN
     Dosage: 8 MILLIGRAM, TID (VIA PERIPHERAL NERVE CATHETERS)
  6. HYDROMORPHONE [Suspect]
     Active Substance: HYDROMORPHONE
     Indication: PAIN
     Dosage: VIA PERIPHERAL NERVE CATHETERS
  7. MAGNESIUM OXIDE. [Suspect]
     Active Substance: MAGNESIUM OXIDE
     Indication: PAIN
     Dosage: 400 MILLIGRAM, BID (VIA PERIPHERAL NERVE CATHETERS)
  8. DULOXETINE. [Suspect]
     Active Substance: DULOXETINE
     Indication: PAIN
     Dosage: 60 MILLIGRAM, QD (VIA PERIPHERAL NERVE CATHETERS)
  9. CELECOXIB. [Suspect]
     Active Substance: CELECOXIB
     Indication: PAIN
     Dosage: 200 MILLIGRAM, BID (VIA PERIPHERAL NERVE CATHETERS)
  10. OXYCODONE [Suspect]
     Active Substance: OXYCODONE
     Indication: PAIN
     Dosage: 40 MILLIGRAM, BID (VIA PERIPHERAL NERVE CATHETERS)

REACTIONS (3)
  - Heparin-induced thrombocytopenia [Unknown]
  - Off label use [Unknown]
  - Treatment failure [Unknown]
